FAERS Safety Report 25060730 (Version 3)
Quarter: 2025Q1

REPORT INFORMATION
  Report Type: Spontaneous
  Country: TW (occurrence: TW)
  Receive Date: 20250310
  Receipt Date: 20250317
  Transmission Date: 20250409
  Serious: Yes (Death, Life-Threatening)
  Sender: NOVARTIS
  Company Number: TW-002147023-NVSC2025TW040163

PATIENT
  Age: 93 Year
  Sex: Female
  Weight: 50 kg

DRUGS (7)
  1. DIOVAN [Suspect]
     Active Substance: VALSARTAN
     Indication: Hypertension
     Dosage: 80 MG, QD
     Route: 048
     Dates: start: 20250211, end: 20250214
  2. ETORICOXIB [Suspect]
     Active Substance: ETORICOXIB
     Indication: Postoperative analgesia
     Dosage: 60 MG, QD
     Route: 048
     Dates: start: 20250212, end: 20250214
  3. LINAGLIPTIN [Suspect]
     Active Substance: LINAGLIPTIN
     Indication: Hypertension
     Dosage: 5 MG, QD
     Route: 048
     Dates: start: 20250211
  4. LINAGLIPTIN [Suspect]
     Active Substance: LINAGLIPTIN
     Indication: Diabetes mellitus
  5. TENOXICAM [Concomitant]
     Active Substance: TENOXICAM
     Indication: Pain
     Dosage: 20 MG, QD (LYOPHILIZED INJECTION)
     Route: 042
     Dates: start: 20250212, end: 20250212
  6. CEFAZOLIN [Concomitant]
     Active Substance: CEFAZOLIN
     Indication: Prophylaxis
     Dosage: 1 G, Q6H
     Route: 041
     Dates: start: 20250212, end: 20250213
  7. PIPERACILLIN SODIUM\TAZOBACTAM SODIUM [Concomitant]
     Active Substance: PIPERACILLIN SODIUM\TAZOBACTAM SODIUM
     Indication: Pneumonia
     Dosage: 4.5 G, Q8H
     Route: 041
     Dates: start: 20250213, end: 20250214

REACTIONS (15)
  - Pneumonia [Fatal]
  - Peptic ulcer haemorrhage [Fatal]
  - Shock haemorrhagic [Fatal]
  - Acute kidney injury [Fatal]
  - Melaena [Fatal]
  - Anaemia [Fatal]
  - Septic shock [Fatal]
  - Duodenal ulcer haemorrhage [Fatal]
  - Chronic kidney disease [Fatal]
  - Azotaemia [Fatal]
  - Ureteric haemorrhage [Fatal]
  - Infection [Unknown]
  - Urine flow decreased [Unknown]
  - Tachycardia [Unknown]
  - Confusional state [Unknown]

NARRATIVE: CASE EVENT DATE: 20250213
